FAERS Safety Report 8715338 (Version 3)
Quarter: 2022Q2

REPORT INFORMATION
  Report Type: Report from Study
  Country: US (occurrence: US)
  Receive Date: 20120809
  Receipt Date: 20220519
  Transmission Date: 20220721
  Serious: Yes (Death, Life-Threatening, Hospitalization, Other)
  Sender: FDA-Public Use
  Company Number: 2011245366

PATIENT
  Age: 67 Year
  Sex: Male
  Weight: 89.1 kg

DRUGS (22)
  1. ASPIRIN [Suspect]
     Active Substance: ASPIRIN
     Indication: Cardiovascular event prophylaxis
     Dosage: 80 MG, 1D
     Route: 048
     Dates: end: 20111105
  2. BENZONATATE [Suspect]
     Active Substance: BENZONATATE
     Indication: Cough
     Dosage: 100 MG, Z (AS NEEDED)
     Route: 048
     Dates: end: 20111105
  3. SENNOSIDES [Suspect]
     Active Substance: SENNOSIDES
     Indication: Product used for unknown indication
     Dosage: 35 MG, BID
     Route: 048
     Dates: start: 20111018, end: 20111022
  4. MILK OF MAGNESIA [Suspect]
     Active Substance: MAGNESIUM HYDROXIDE
     Indication: Product used for unknown indication
     Dosage: 30 ML, Z (AS NEEDED)
     Route: 048
     Dates: start: 20111016
  5. COREG [Suspect]
     Active Substance: CARVEDILOL
     Indication: Hypertension
     Dosage: 3.125 MG, 1D
     Route: 048
     Dates: end: 20111010
  6. POTASSIUM CHLORIDE [Suspect]
     Active Substance: POTASSIUM CHLORIDE
     Indication: Nutritional supplementation
     Dosage: 20 MEQ, 1D
     Route: 048
     Dates: end: 20111105
  7. LEVOTHYROXINE SODIUM [Suspect]
     Active Substance: LEVOTHYROXINE SODIUM
     Indication: Hypothyroidism
     Dosage: 50 UG, 1D
     Route: 048
     Dates: end: 20111105
  8. VANCOMYCIN HYDROCHLORIDE [Suspect]
     Active Substance: VANCOMYCIN HYDROCHLORIDE
     Indication: Product used for unknown indication
     Dosage: 1750 MG, QD
     Route: 042
     Dates: start: 20111015, end: 20111015
  9. VANCOMYCIN HYDROCHLORIDE [Suspect]
     Active Substance: VANCOMYCIN HYDROCHLORIDE
     Dosage: 1500 MG, BID
     Route: 042
     Dates: start: 20111015, end: 20111016
  10. MEROPENEM [Suspect]
     Active Substance: MEROPENEM
     Indication: Product used for unknown indication
     Dosage: UNK, TID (1 GRAM IN 50 ML)
     Route: 042
     Dates: start: 20111015, end: 20111019
  11. LEVOFLOXACIN [Suspect]
     Active Substance: LEVOFLOXACIN
     Indication: Product used for unknown indication
     Dosage: UNK UNK, QD (750 MG/D5W 150)
     Route: 042
     Dates: start: 20111015, end: 20111018
  12. ZETIA [Suspect]
     Active Substance: EZETIMIBE
     Indication: Hyperlipidaemia
     Dosage: 10 MG, 1D
     Route: 048
     Dates: end: 20111105
  13. ZOCOR [Suspect]
     Active Substance: SIMVASTATIN
     Indication: Hyperlipidaemia
     Dosage: 40 MG, 1D
     Route: 048
     Dates: end: 20111105
  14. CRIZOTINIB [Suspect]
     Active Substance: CRIZOTINIB
     Indication: Hypertension
     Dosage: 250 MG, BID
     Route: 048
     Dates: start: 20110603, end: 20111024
  15. CRIZOTINIB [Suspect]
     Active Substance: CRIZOTINIB
     Indication: Non-small cell lung cancer
  16. LASIX [Suspect]
     Active Substance: FUROSEMIDE
     Indication: Hypertension
     Dosage: UNK
     Route: 048
     Dates: start: 20111025, end: 20111105
  17. FLUZONE [Suspect]
     Active Substance: INFLUENZA A VIRUS A/CALIFORNIA/7/2009 X-179A (H1N1) ANTIGEN (FORMALDEHYDE INACTIVATED)\INFLUENZA A V
     Indication: Influenza immunisation
     Dosage: 1 DF
     Route: 058
     Dates: start: 20111005, end: 20111005
  18. SOLU-MEDROL [Suspect]
     Active Substance: METHYLPREDNISOLONE SODIUM SUCCINATE
     Indication: Orthostatic hypotension
     Dosage: 40 MG
     Route: 042
     Dates: start: 20111015
  19. SOLU-MEDROL [Suspect]
     Active Substance: METHYLPREDNISOLONE SODIUM SUCCINATE
     Dosage: 80 MG
     Route: 042
     Dates: start: 20111017, end: 20111019
  20. MAGNESIUM CITRATE [Suspect]
     Active Substance: MAGNESIUM CITRATE
     Indication: Product used for unknown indication
     Dosage: 60 ML, Z (4 DOSES)
     Route: 048
     Dates: start: 20111018
  21. MAGNESIUM CITRATE [Suspect]
     Active Substance: MAGNESIUM CITRATE
     Dosage: 60 ML, Z (1 DOSE)
     Route: 048
     Dates: start: 20111019
  22. MIRALAX [Suspect]
     Active Substance: POLYETHYLENE GLYCOL 3350
     Indication: Product used for unknown indication
     Dosage: UNK (17 GM IN 8 OZ. WATER)
     Route: 048
     Dates: start: 20111018, end: 20111022

REACTIONS (5)
  - Non-small cell lung cancer [Fatal]
  - Orthostatic hypotension [Recovering/Resolving]
  - Constipation [Recovering/Resolving]
  - Ileus [Recovering/Resolving]
  - Failure to thrive [Unknown]

NARRATIVE: CASE EVENT DATE: 20111012
